FAERS Safety Report 24059099 (Version 1)
Quarter: 2024Q3

REPORT INFORMATION
  Report Type: Report from Study
  Country: US (occurrence: US)
  Receive Date: 20240708
  Receipt Date: 20240708
  Transmission Date: 20241016
  Serious: Yes (Hospitalization, Disabling)
  Sender: ABBVIE
  Company Number: US-ABBVIE-5822387

PATIENT
  Sex: Male
  Weight: 99.8 kg

DRUGS (9)
  1. VENCLEXTA [Suspect]
     Active Substance: VENETOCLAX
     Indication: Acute myeloid leukaemia
     Route: 048
     Dates: start: 20210405
  2. ACITIDINE [Concomitant]
     Indication: Acute myeloid leukaemia
  3. OMEPRAZOLE [Concomitant]
     Active Substance: OMEPRAZOLE
     Indication: Gastrooesophageal reflux disease
  4. DEXAMETHASONE [Concomitant]
     Active Substance: DEXAMETHASONE
     Indication: Acute myeloid leukaemia
  5. ONDANSETRON [Concomitant]
     Active Substance: ONDANSETRON
     Indication: Acute myeloid leukaemia
  6. ATORVASTATIN [Concomitant]
     Active Substance: ATORVASTATIN
     Indication: Product used for unknown indication
  7. FLUCONAZOLE [Concomitant]
     Active Substance: FLUCONAZOLE
     Indication: Adjuvant therapy
  8. HYDROCHLOROTHIAZIDE [Concomitant]
     Active Substance: HYDROCHLOROTHIAZIDE
     Indication: Swelling
  9. LEVOTHYROXINE [Concomitant]
     Active Substance: LEVOTHYROXINE\LEVOTHYROXINE SODIUM
     Indication: Hypothyroidism

REACTIONS (18)
  - Blindness [Not Recovered/Not Resolved]
  - Cardiac disorder [Unknown]
  - Weight decreased [Not Recovered/Not Resolved]
  - Eye disorder [Unknown]
  - Cardiac valve disease [Not Recovered/Not Resolved]
  - Gait disturbance [Unknown]
  - Cerebral haemorrhage [Unknown]
  - White blood cell count decreased [Unknown]
  - Heart rate increased [Recovered/Resolved]
  - Haemoglobin decreased [Unknown]
  - Fall [Recovered/Resolved]
  - Lens disorder [Not Recovered/Not Resolved]
  - Hypertension [Recovering/Resolving]
  - Platelet count decreased [Recovered/Resolved]
  - Diarrhoea [Recovering/Resolving]
  - Aphasia [Recovering/Resolving]
  - Head injury [Unknown]
  - Atrial fibrillation [Recovering/Resolving]

NARRATIVE: CASE EVENT DATE: 20230101
